FAERS Safety Report 7184410-8 (Version None)
Quarter: 2010Q4

REPORT INFORMATION
  Report Type: 
  Country: None (occurrence: None)
  Receive Date: 20101222
  Receipt Date: 20091215
  Transmission Date: 20110411
  Serious: No
  Sender: FDA-Public Use
  Company Number: US-PFIZER INC-2009310903

PATIENT
  Age: 63 Year
  Sex: Female

DRUGS (5)
  1. DIFLUCAN [Suspect]
  2. SPIRIVA [Suspect]
  3. COMBIVENT [Concomitant]
  4. ADVAIR [Concomitant]
  5. FOSAMAX [Concomitant]

REACTIONS (4)
  - BLOOD URINE PRESENT [None]
  - EPISTAXIS [None]
  - HAEMATOCHEZIA [None]
  - OEDEMA PERIPHERAL [None]
